FAERS Safety Report 17553639 (Version 4)
Quarter: 2020Q4

REPORT INFORMATION
  Report Type: Report from Study
  Country: US (occurrence: US)
  Receive Date: 20200317
  Receipt Date: 20201229
  Transmission Date: 20210113
  Serious: Yes (Other)
  Sender: FDA-Public Use
  Company Number: US-JNJFOC-20200314883

PATIENT
  Age: 55 Year
  Sex: Male

DRUGS (5)
  1. CLONAZEPAM. [Concomitant]
     Active Substance: CLONAZEPAM
     Indication: ANXIETY
     Dates: start: 20191007
  2. SPRAVATO [Suspect]
     Active Substance: ESKETAMINE
     Indication: DEPRESSION
     Dosage: TOTAL OF 3 DOSES
     Dates: start: 20190829, end: 20190905
  3. SPRAVATO [Suspect]
     Active Substance: ESKETAMINE
     Dosage: TOTAL 23 DOSES
     Dates: start: 20190910, end: 20200221
  4. LAMOTRIGINE. [Concomitant]
     Active Substance: LAMOTRIGINE
     Indication: DEPRESSION
     Dates: start: 20171016
  5. SPRAVATO [Suspect]
     Active Substance: ESKETAMINE
     Dates: start: 20200304, end: 20201013

REACTIONS (1)
  - Atrial fibrillation [Recovered/Resolved]

NARRATIVE: CASE EVENT DATE: 20200304
